FAERS Safety Report 5413940-1 (Version None)
Quarter: 2007Q3

REPORT INFORMATION
  Report Type: 
  Country: None (occurrence: None)
  Receive Date: 20070814
  Receipt Date: 20070810
  Transmission Date: 20080115
  Serious: No
  Sender: FDA-Public Use
  Company Number: US-BOEHRINGER INGELHEIM PHARMACEUTICALS, INC.-2007-BP-16686BP

PATIENT
  Age: 84 Year
  Sex: Male

DRUGS (4)
  1. FLOMAX [Suspect]
     Indication: BENIGN PROSTATIC HYPERPLASIA
     Route: 048
     Dates: start: 20050101
  2. COUMADIN [Concomitant]
     Indication: ATRIAL FIBRILLATION
     Route: 048
  3. TASTIA [Concomitant]
     Indication: HYPERTENSION
     Route: 048
  4. VIAGRA [Concomitant]
     Indication: SEXUAL DYSFUNCTION
     Route: 048

REACTIONS (1)
  - MIDDLE INSOMNIA [None]
